FAERS Safety Report 25030907 (Version 3)
Quarter: 2025Q2

REPORT INFORMATION
  Report Type: Spontaneous
  Country: GB (occurrence: GB)
  Receive Date: 20250303
  Receipt Date: 20250403
  Transmission Date: 20250716
  Serious: Yes (Hospitalization)
  Sender: MYLAN
  Company Number: GB-MYLANLABS-2025M1016621

PATIENT
  Sex: Male

DRUGS (1)
  1. CLOZARIL [Suspect]
     Active Substance: CLOZAPINE
     Indication: Schizophrenia
     Dates: start: 20020925, end: 20250221

REACTIONS (4)
  - Schizophrenia [Unknown]
  - Sepsis [Unknown]
  - Malaise [Unknown]
  - Hyporesponsive to stimuli [Unknown]
